FAERS Safety Report 7205384-7 (Version None)
Quarter: 2010Q4

REPORT INFORMATION
  Report Type: 
  Country: None (occurrence: None)
  Receive Date: 20101231
  Receipt Date: 20101222
  Transmission Date: 20110411
  Serious: No
  Sender: FDA-Public Use
  Company Number: US-PFIZER INC-2010135897

PATIENT
  Sex: Female
  Weight: 113.38 kg

DRUGS (6)
  1. CELEBREX [Suspect]
     Indication: OSTEOARTHRITIS
     Dosage: 200 MG, AS NEEDED
     Route: 048
  2. CELEBREX [Suspect]
     Indication: RHEUMATOID ARTHRITIS
  3. PREMARIN [Suspect]
     Indication: VULVOVAGINAL DRYNESS
     Dosage: 1 G, DAILY
     Route: 067
     Dates: start: 20100706, end: 20100101
  4. PREMARIN [Suspect]
     Dosage: UNK DOSE 2-3 TIMES A WEEK
     Route: 067
     Dates: start: 20100101
  5. SYNTHROID [Concomitant]
     Dosage: UNK
  6. NAPROSYN [Concomitant]
     Dosage: UNK

REACTIONS (3)
  - CYSTITIS [None]
  - DRUG INEFFECTIVE [None]
  - NEUROMA [None]
